FAERS Safety Report 11920210 (Version 1)
Quarter: 2016Q1

REPORT INFORMATION
  Report Type: Spontaneous
  Country: GB (occurrence: GB)
  Receive Date: 20160115
  Receipt Date: 20160115
  Transmission Date: 20160526
  Serious: Yes (Other)
  Sender: FDA-Public Use
  Company Number: GB-TEVA-625069ACC

PATIENT
  Sex: Male

DRUGS (4)
  1. NYTOL [Interacting]
     Active Substance: DIPHENHYDRAMINE HYDROCHLORIDE
     Dosage: 1 DOSAGE FORMS DAILY; 1 DOSAGE FORM; AT NIGHT
  2. KEPPRA [Interacting]
     Active Substance: LEVETIRACETAM
     Indication: TEMPORAL LOBE EPILEPSY
  3. LAMOTRIGINE. [Suspect]
     Active Substance: LAMOTRIGINE
     Indication: TEMPORAL LOBE EPILEPSY
  4. VENLAFAXINE [Interacting]
     Active Substance: VENLAFAXINE HYDROCHLORIDE
     Indication: DEPRESSION
     Dosage: LONG TERM

REACTIONS (2)
  - Drug interaction [Unknown]
  - Epilepsy [Unknown]
